FAERS Safety Report 13337413 (Version 3)
Quarter: 2017Q2

REPORT INFORMATION
  Report Type: Report from Study
  Country: CA (occurrence: CA)
  Receive Date: 20170315
  Receipt Date: 20170606
  Transmission Date: 20170830
  Serious: Yes (Other)
  Sender: FDA-Public Use
  Company Number: PHHY2016CA168667

PATIENT
  Sex: Female

DRUGS (2)
  1. PANTOPRAZOLE [Concomitant]
     Active Substance: PANTOPRAZOLE
     Indication: PRODUCT USED FOR UNKNOWN INDICATION
     Route: 065
  2. GLIVEC [Suspect]
     Active Substance: IMATINIB MESYLATE
     Indication: GASTROINTESTINAL STROMAL TUMOUR
     Dosage: 400 MG, QD
     Route: 048
     Dates: start: 20161123

REACTIONS (21)
  - Mass [Unknown]
  - Eyelid oedema [Unknown]
  - Eyelid tumour [Unknown]
  - Nausea [Recovered/Resolved]
  - Initial insomnia [Unknown]
  - Peripheral swelling [Unknown]
  - Lacrimation increased [Unknown]
  - Nausea [Unknown]
  - Swelling [Unknown]
  - Nervousness [Unknown]
  - Appetite disorder [Unknown]
  - Skin discolouration [Unknown]
  - Eye discharge [Unknown]
  - Pain [Recovered/Resolved]
  - Dry skin [Unknown]
  - Vomiting [Unknown]
  - Dyspnoea [Unknown]
  - Eye swelling [Unknown]
  - Vomiting [Recovered/Resolved]
  - Weight decreased [Unknown]
  - Back pain [Unknown]
